FAERS Safety Report 5331215-6 (Version None)
Quarter: 2007Q2

REPORT INFORMATION
  Report Type: 
  Country: None (occurrence: None)
  Receive Date: 20070522
  Receipt Date: 20070514
  Transmission Date: 20071010
  Serious: No
  Sender: FDA-Public Use
  Company Number: US-JNJFOC-20070503845

PATIENT
  Age: 54 Year
  Sex: Female

DRUGS (4)
  1. INVEGA [Suspect]
     Indication: DRUG USE FOR UNKNOWN INDICATION
     Dosage: 3-6 MG DAILY
     Route: 048
  2. LAMICTAL [Concomitant]
  3. ATAROL [Concomitant]
  4. SYMBALTA [Concomitant]

REACTIONS (1)
  - TREMOR [None]
